FAERS Safety Report 13938037 (Version 1)
Quarter: 2017Q3

REPORT INFORMATION
  Report Type: Spontaneous
  Country: US (occurrence: US)
  Receive Date: 20170905
  Receipt Date: 20170905
  Transmission Date: 20171127
  Serious: Yes (Hospitalization, Other)
  Sender: FDA-Public Use
  Company Number: US-NATCO PHARMA-2017NAT00074

PATIENT
  Age: 90 Year
  Sex: Male

DRUGS (14)
  1. LACTULOSE. [Suspect]
     Active Substance: LACTULOSE
     Dosage: 30 ML, 3X/DAY
  2. ASPIRIN. [Concomitant]
     Active Substance: ASPIRIN
     Dosage: 81 MG, 1X/DAY EVERY MORNING
     Route: 048
  3. LEVOTHYROXINE. [Concomitant]
     Active Substance: LEVOTHYROXINE
     Dosage: 1 TABLETS, 1X/DAY IN THE MORNING
  4. GLIMEPIRIDE. [Concomitant]
     Active Substance: GLIMEPIRIDE
     Dosage: UNK, 1X/DAY IN THE MORNING
  5. RIFAXIMIN [Suspect]
     Active Substance: RIFAXIMIN
     Dosage: 550 MG, 2X/DAY
  6. PREDNISOLONE. [Concomitant]
     Active Substance: PREDNISOLONE
     Dosage: 1 GTT IN THE LEFT EYE, 1X/DAY
     Route: 047
  7. LACTULOSE. [Suspect]
     Active Substance: LACTULOSE
     Dosage: 5 ML, 3X/DAY
  8. LATANOPROST. [Concomitant]
     Active Substance: LATANOPROST
     Dosage: 1 GTT IN THE LEFT EYE, 1X/DAY AT BEDTIME
     Route: 047
  9. LANSOPRAZOLE. [Suspect]
     Active Substance: LANSOPRAZOLE
     Indication: DYSPHAGIA
     Dosage: 30 MG, 1X/DAY IN THE MORNING
     Route: 048
     Dates: start: 2007
  10. LOSARTAN. [Concomitant]
     Active Substance: LOSARTAN
     Dosage: UNK, 1X/DAY IN THE MORNING
  11. UNSPECIFIED STOOL SOFTENER [Concomitant]
     Dosage: UNK, 1X/DAY IN THE EVENING
  12. MIRALAX [Concomitant]
     Active Substance: POLYETHYLENE GLYCOL 3350
     Dosage: UNK, 1X/DAY IN THE EVENING
  13. MONTELUKAST [Concomitant]
     Active Substance: MONTELUKAST SODIUM
     Dosage: 1 TABLETS, 1X/DAY IN THE MORNING
  14. ATORVASTATIN [Concomitant]
     Active Substance: ATORVASTATIN
     Dosage: 1 TABLETS, 1X/DAY IN THE EVENING

REACTIONS (5)
  - Flatulence [Unknown]
  - Urinary retention [Unknown]
  - Constipation [Unknown]
  - Blindness unilateral [Not Recovered/Not Resolved]
  - Abdominal pain upper [Unknown]

NARRATIVE: CASE EVENT DATE: 201708
